FAERS Safety Report 5155954-5 (Version None)
Quarter: 2006Q4

REPORT INFORMATION
  Report Type: 
  Country: None (occurrence: None)
  Receive Date: 20061122
  Receipt Date: 20061109
  Transmission Date: 20070319
  Serious: Yes (Hospitalization)
  Sender: FDA-Public Use
  Company Number: FR-PURDUE-GBR_2006_0002601

PATIENT
  Age: 79 Year
  Sex: Male

DRUGS (2)
  1. OXYCONTIN [Suspect]
     Indication: CANCER PAIN
     Route: 048
     Dates: start: 20061010
  2. OXYNORM [Suspect]
     Indication: CANCER PAIN
     Route: 048
     Dates: start: 20061010

REACTIONS (1)
  - HOSPITALISATION [None]
